FAERS Safety Report 24753160 (Version 3)
Quarter: 2025Q1

REPORT INFORMATION
  Report Type: Report from Study
  Country: JP (occurrence: JP)
  Receive Date: 20241219
  Receipt Date: 20250210
  Transmission Date: 20250408
  Serious: Yes (Hospitalization)
  Sender: RIGEL PHARMACEUTICALS
  Company Number: JP-KISSEI-TL20240646_P_1

PATIENT
  Age: 79 Year
  Sex: Female
  Weight: 37 kg

DRUGS (4)
  1. FOSTAMATINIB DISODIUM [Suspect]
     Active Substance: FOSTAMATINIB DISODIUM
     Indication: Immune thrombocytopenia
     Dosage: 100 MG Q12 H
     Route: 048
     Dates: start: 20240911, end: 20241008
  2. PREDNISOLONE [Concomitant]
     Active Substance: PREDNISOLONE
     Indication: Immune thrombocytopenia
     Dosage: 12.5 MG QD
     Route: 048
  3. ELTROMBOPAG OLAMINE [Concomitant]
     Active Substance: ELTROMBOPAG OLAMINE
     Indication: Treatment noncompliance
     Dosage: 12.5 MG QD
     Route: 048
     Dates: end: 20240911
  4. VYVGART [EFGARTIGIMOD ALFA FCAB] [Concomitant]
     Indication: Immune thrombocytopenia
     Dosage: 400 MG QW
     Route: 041
     Dates: start: 20241030

REACTIONS (2)
  - Hepatic cirrhosis [Recovered/Resolved]
  - Hepatic function abnormal [Recovered/Resolved]

NARRATIVE: CASE EVENT DATE: 20240925
